FAERS Safety Report 7384923-X (Version None)
Quarter: 2011Q1

REPORT INFORMATION
  Report Type: 
  Country: None (occurrence: None)
  Receive Date: 20110322
  Receipt Date: 20110310
  Transmission Date: 20110831
  Serious: Yes (Hospitalization, Disabling, Other)
  Sender: FDA-Public Use
  Company Number: CL-294-2011

PATIENT
  Age: 67 Year
  Sex: Male

DRUGS (3)
  1. CEFIXIME [Suspect]
     Indication: LIVER ABSCESS
     Dosage: 200 MG, QD, ORAL
     Route: 048
  2. METRONIDAZOLE [Suspect]
     Indication: LIVER ABSCESS
     Dosage: 500 MG TDS, INTRAVENOUS
     Route: 042
  3. CEFOTAXIME [Suspect]
     Indication: LIVER ABSCESS
     Dosage: 6GM, QD, INTRAVENOUS
     Route: 042

REACTIONS (9)
  - DRUG INTERACTION [None]
  - GUILLAIN-BARRE SYNDROME [None]
  - NEUROTOXICITY [None]
  - NEUROPATHY PERIPHERAL [None]
  - HYPERHIDROSIS [None]
  - BLOOD PRESSURE FLUCTUATION [None]
  - ATAXIA [None]
  - DYSPNOEA [None]
  - DYSARTHRIA [None]
